FAERS Safety Report 7885202-4 (Version None)
Quarter: 2011Q4

REPORT INFORMATION
  Report Type: 
  Country: None (occurrence: None)
  Receive Date: 20111102
  Receipt Date: 20111020
  Transmission Date: 20120403
  Serious: Yes (Hospitalization, Disabling)
  Sender: FDA-Public Use
  Company Number: US-CELGENEUS-163-21880-11091207

PATIENT
  Sex: Male

DRUGS (26)
  1. REVLIMID [Suspect]
     Indication: MULTIPLE MYELOMA
     Dosage: 10 MILLIGRAM
     Route: 048
     Dates: start: 20100407, end: 20110830
  2. ZOMETA [Concomitant]
     Dosage: 4 MILLIGRAM
     Route: 065
     Dates: start: 20100716
  3. DEXAMETHASONE [Concomitant]
     Dosage: 5
     Route: 048
     Dates: start: 20110408
  4. POTASSIUM CHLORIDE [Concomitant]
     Dosage: 1
     Route: 048
     Dates: start: 20110602
  5. PRILOSEC [Concomitant]
     Dosage: 1
     Route: 048
     Dates: start: 20110214
  6. PRISTIQ [Concomitant]
     Dosage: 50 MILLIGRAM
     Route: 048
     Dates: start: 20100113
  7. VELCADE [Concomitant]
     Dosage: 1.3 MILLIGRAM/SQ. METER
     Route: 065
     Dates: start: 20110613, end: 20110905
  8. PROCRIT [Concomitant]
     Dosage: 40000
     Route: 065
     Dates: start: 20110816, end: 20111019
  9. DEXAMETHASONE [Concomitant]
     Dosage: 4 MILLIGRAM
     Route: 048
     Dates: start: 20100113
  10. PRILOSEC [Concomitant]
     Dosage: 1
     Route: 048
     Dates: start: 20100113
  11. SENOKOT [Concomitant]
     Dosage: 50 MILLIGRAM
     Route: 048
     Dates: start: 20100113
  12. CYTOXAN [Concomitant]
     Dosage: 12
     Route: 048
     Dates: start: 20110830
  13. FLOMAX [Concomitant]
     Dosage: 1
     Route: 048
     Dates: start: 20100113
  14. FERUMOXYTOL [Concomitant]
     Route: 065
     Dates: start: 20110902, end: 20110909
  15. SIMVASTATIN [Concomitant]
     Dosage: 20 MILLIGRAM
     Route: 048
     Dates: start: 20100113
  16. HYDROCHLOROTHIAZIDE [Concomitant]
     Dosage: 25 MILLIGRAM
     Route: 048
     Dates: start: 20100113
  17. ZITHROMAX [Concomitant]
     Dosage: 250 MILLIGRAM
     Route: 048
     Dates: start: 20110524
  18. CYTOXAN [Concomitant]
     Dosage: 8
     Route: 048
     Dates: start: 20111005
  19. ACYCLOVIR [Concomitant]
     Dosage: 1
     Route: 048
     Dates: start: 20110907
  20. ASPIRIN [Concomitant]
     Dosage: 1
     Route: 048
     Dates: start: 20100113
  21. VELCADE [Concomitant]
     Indication: DISEASE PROGRESSION
     Dosage: 1.3 MILLIGRAM/SQ. METER
     Route: 065
     Dates: start: 20100407, end: 20100813
  22. VELCADE [Concomitant]
     Dosage: 1.3 MILLIGRAM/SQ. METER
     Route: 065
     Dates: start: 20100824, end: 20110527
  23. CYTOXAN [Concomitant]
     Indication: DISEASE PROGRESSION
     Route: 065
     Dates: start: 20110809, end: 20110906
  24. PROMETHAZINE [Concomitant]
     Dosage: 25 MILLIGRAM
     Route: 048
     Dates: start: 20100113
  25. TOPROL-XL [Concomitant]
     Dosage: 100 MILLIGRAM
     Route: 048
     Dates: start: 20100113
  26. XANAX [Concomitant]
     Dosage: .25 MILLIGRAM
     Route: 048
     Dates: start: 20100113

REACTIONS (2)
  - MULTIPLE MYELOMA [None]
  - PERFORMANCE STATUS DECREASED [None]
